FAERS Safety Report 21270222 (Version 1)
Quarter: 2022Q3

REPORT INFORMATION
  Report Type: Spontaneous
  Country: FR (occurrence: FR)
  Receive Date: 20220830
  Receipt Date: 20220830
  Transmission Date: 20221027
  Serious: Yes (Death, Life-Threatening, Other)
  Sender: FDA-Public Use
  Company Number: FR-MYLANLABS-2022M1089945

PATIENT
  Age: 51 Year

DRUGS (1)
  1. FLUOROURACIL [Suspect]
     Active Substance: FLUOROURACIL
     Indication: Neuroendocrine carcinoma
     Dosage: UNK, 50% OF STANDARD DOSE
     Route: 065

REACTIONS (3)
  - Death [Fatal]
  - Tumour lysis syndrome [Unknown]
  - Acute kidney injury [Unknown]
